FAERS Safety Report 12824083 (Version 1)
Quarter: 2016Q4

REPORT INFORMATION
  Report Type: Spontaneous
  Country: US (occurrence: US)
  Receive Date: 20161007
  Receipt Date: 20161007
  Transmission Date: 20170207
  Serious: Yes (Life-Threatening)
  Sender: FDA-Public Use
  Company Number: None

PATIENT
  Age: 56 Year
  Sex: Female
  Weight: 85.81 kg

DRUGS (19)
  1. ASPIRIN. [Concomitant]
     Active Substance: ASPIRIN
  2. OXYCODONE [Concomitant]
     Active Substance: OXYCODONE
  3. ASTELIN [Concomitant]
     Active Substance: AZELASTINE HYDROCHLORIDE
  4. HYDROXYZINE [Concomitant]
     Active Substance: HYDROXYZINE\HYDROXYZINE HYDROCHLORIDE
  5. KLONOPIN [Concomitant]
     Active Substance: CLONAZEPAM
  6. LEVEMIR [Concomitant]
     Active Substance: INSULIN DETEMIR
  7. VITAMIN B12 [Concomitant]
     Active Substance: CYANOCOBALAMIN
  8. LEVOTHYROX [Concomitant]
     Active Substance: LEVOTHYROXINE
  9. HUMALOG [Concomitant]
     Active Substance: INSULIN LISPRO
  10. TEMOVATE CREAM [Concomitant]
  11. HUMIRA [Suspect]
     Active Substance: ADALIMUMAB
     Indication: RASH
     Dosage: 2 SHOT A MOUTH A SHOT EVERY 14 DAY INJECTION
     Dates: start: 20151111, end: 20160811
  12. HUMIRA [Suspect]
     Active Substance: ADALIMUMAB
     Indication: SKIN ULCER
     Dosage: 2 SHOT A MOUTH A SHOT EVERY 14 DAY INJECTION
     Dates: start: 20151111, end: 20160811
  13. VITAMIN [Concomitant]
     Active Substance: VITAMINS
  14. METFORMIN [Concomitant]
     Active Substance: METFORMIN HYDROCHLORIDE
  15. LISINOPRIL. [Concomitant]
     Active Substance: LISINOPRIL
  16. METOPROLOL. [Concomitant]
     Active Substance: METOPROLOL
  17. HUMIRA [Suspect]
     Active Substance: ADALIMUMAB
     Indication: SKIN DISORDER
     Dosage: 2 SHOT A MOUTH A SHOT EVERY 14 DAY INJECTION
     Dates: start: 20151111, end: 20160811
  18. MAGNESIUM [Concomitant]
     Active Substance: MAGNESIUM
  19. MULTIVITAMIN [Concomitant]
     Active Substance: VITAMINS

REACTIONS (3)
  - Fatigue [None]
  - Liver disorder [None]
  - Dyspnoea [None]
